FAERS Safety Report 7577600-3 (Version None)
Quarter: 2011Q2

REPORT INFORMATION
  Report Type: 
  Country: None (occurrence: None)
  Receive Date: 20110628
  Receipt Date: 20101022
  Transmission Date: 20111010
  Serious: No
  Sender: FDA-Public Use
  Company Number: US-KINGPHARMUSA00001-K201001316

PATIENT
  Age: 8 Year
  Sex: Female
  Weight: 54.422 kg

DRUGS (2)
  1. BICILLIN L-A [Suspect]
     Indication: PHARYNGITIS STREPTOCOCCAL
     Dosage: 1.2 MILLION UNITS, SINGLE
     Route: 030
     Dates: start: 20101022, end: 20101022
  2. MOTRIN [Concomitant]

REACTIONS (2)
  - EXPIRED DRUG ADMINISTERED [None]
  - NO ADVERSE EVENT [None]
